FAERS Safety Report 22535547 (Version 2)
Quarter: 2023Q2

REPORT INFORMATION
  Report Type: Spontaneous
  Country: US (occurrence: US)
  Receive Date: 20230608
  Receipt Date: 20230616
  Transmission Date: 20230722
  Serious: Yes (Other)
  Sender: FDA-Public Use
  Company Number: US-LUPIN PHARMACEUTICALS INC.-2023-04388

PATIENT

DRUGS (1)
  1. ALBUTEROL SULFATE [Suspect]
     Active Substance: ALBUTEROL SULFATE
     Indication: Asthma
     Dosage: UNK (2 PUFFS FOR EVERY HARDNESS OF BREATHING)

REACTIONS (4)
  - Device loosening [Unknown]
  - Chest discomfort [Unknown]
  - Device delivery system issue [Unknown]
  - Drug dose omission by device [Unknown]
